FAERS Safety Report 6960709-2 (Version None)
Quarter: 2010Q3

REPORT INFORMATION
  Report Type: 
  Country: None (occurrence: None)
  Receive Date: 20100830
  Receipt Date: 20100813
  Transmission Date: 20110219
  Serious: Yes (Hospitalization)
  Sender: FDA-Public Use
  Company Number: A-NJ2010-37899

PATIENT
  Age: 67 Year
  Sex: Female

DRUGS (1)
  1. TRACLEER [Suspect]
     Indication: PULMONARY ARTERIAL HYPERTENSION
     Dosage: ORAL, 62.5 MG, BID
     Route: 048
     Dates: start: 20070918

REACTIONS (4)
  - DYSPNOEA [None]
  - HEAT STROKE [None]
  - HYPERCHLORHYDRIA [None]
  - SINUSITIS [None]
